FAERS Safety Report 18210407 (Version 1)
Quarter: 2020Q3

REPORT INFORMATION
  Report Type: Spontaneous
  Country: US (occurrence: US)
  Receive Date: 20200829
  Receipt Date: 20200829
  Transmission Date: 20201103
  Serious: No
  Sender: FDA-Public Use
  Company Number: US-SCIEGEN-2020SCISPO00256

PATIENT

DRUGS (1)
  1. CARISOPRODOL TABLETS [Suspect]
     Active Substance: CARISOPRODOL
     Indication: BACK PAIN
     Route: 048
     Dates: end: 20200805

REACTIONS (9)
  - Neck pain [Unknown]
  - Agitation [Unknown]
  - Muscle spasms [Unknown]
  - Muscle twitching [Unknown]
  - Insomnia [Unknown]
  - Depression [Unknown]
  - Abdominal pain [Unknown]
  - Dysstasia [Unknown]
  - Back pain [Unknown]
